FAERS Safety Report 8123525-4 (Version None)
Quarter: 2012Q1

REPORT INFORMATION
  Report Type: 
  Country: None (occurrence: None)
  Receive Date: 20120208
  Receipt Date: 20120131
  Transmission Date: 20120608
  Serious: Yes (Hospitalization)
  Sender: FDA-Public Use
  Company Number: PHHY2011DE111754

PATIENT
  Sex: Female

DRUGS (6)
  1. GILENYA [Suspect]
     Indication: MULTIPLE SCLEROSIS
     Dosage: 0.5 MG, QD
     Route: 048
     Dates: start: 20110829, end: 20120109
  2. IBUPROFEN [Concomitant]
     Indication: PAIN
     Dosage: 400 MG, PRN
     Route: 048
  3. ANESTHETICS [Concomitant]
     Indication: SURGERY
     Dates: start: 20111004, end: 20111004
  4. DICLOFENAC [Concomitant]
     Indication: PAIN
     Dosage: 75 MG, PRN
     Route: 048
  5. HEPARIN [Concomitant]
     Indication: THROMBOSIS
     Dosage: 0.4 ML, QD
     Route: 058
     Dates: start: 20111004, end: 20111011
  6. HEPARIN [Concomitant]
     Dosage: 0.4 ML, QD
     Route: 058
     Dates: start: 20111013, end: 20111015

REACTIONS (2)
  - HEPATIC ENZYME INCREASED [None]
  - LOWER LIMB FRACTURE [None]
